FAERS Safety Report 5669389-X (Version None)
Quarter: 2008Q1

REPORT INFORMATION
  Report Type: 
  Country: None (occurrence: None)
  Receive Date: 20080317
  Receipt Date: 20080228
  Transmission Date: 20080703
  Serious: Yes (Death)
  Sender: FDA-Public Use
  Company Number: A0588896A

PATIENT
  Age: 25 Year
  Sex: Male
  Weight: 120.9 kg

DRUGS (3)
  1. PAXIL [Suspect]
     Indication: ANXIETY
     Dosage: 60MG PER DAY
     Route: 048
     Dates: start: 20031218, end: 20040827
  2. TOPROL [Concomitant]
  3. XANAX [Concomitant]

REACTIONS (17)
  - AGITATION [None]
  - ANGER [None]
  - ANXIETY [None]
  - CHEST PAIN [None]
  - COMPLETED SUICIDE [None]
  - DECREASED APPETITE [None]
  - DEPRESSION [None]
  - GASTRIC DISORDER [None]
  - HEADACHE [None]
  - INSOMNIA [None]
  - MOOD SWINGS [None]
  - NIGHT SWEATS [None]
  - NIGHTMARE [None]
  - PAIN [None]
  - PANIC ATTACK [None]
  - PARAESTHESIA [None]
  - TREMOR [None]
